FAERS Safety Report 8215988-0 (Version None)
Quarter: 2012Q1

REPORT INFORMATION
  Report Type: 
  Country: None (occurrence: None)
  Receive Date: 20120316
  Receipt Date: 20120314
  Transmission Date: 20120608
  Serious: No
  Sender: FDA-Public Use
  Company Number: US-PFIZER INC-2012067729

PATIENT
  Sex: Female
  Weight: 111 kg

DRUGS (12)
  1. NABUMETONE [Concomitant]
     Dosage: UNK
  2. CHANTIX [Suspect]
     Dosage: UNK
     Route: 048
     Dates: start: 20120101
  3. ATORVASTATIN [Concomitant]
     Dosage: UNK
  4. TRAMADOL [Concomitant]
     Dosage: UNK
  5. CLONAZEPAM [Concomitant]
     Dosage: UNK
  6. VITAMIN B-12 [Concomitant]
     Dosage: UNK
  7. AMBIEN [Concomitant]
     Dosage: UNK
  8. CHANTIX [Suspect]
     Indication: SMOKING CESSATION THERAPY
     Dosage: 0.5 MG, 1X/DAY
     Route: 048
     Dates: start: 20120229, end: 20120101
  9. SYNTHROID [Concomitant]
     Dosage: UNK
  10. PREDNISONE [Concomitant]
     Dosage: UNK
  11. TOCILIZUMAB [Concomitant]
     Dosage: UNK
  12. MULTI-VITAMINS [Concomitant]
     Dosage: UNK

REACTIONS (4)
  - WHITE BLOOD CELL COUNT INCREASED [None]
  - FLATULENCE [None]
  - CONSTIPATION [None]
  - SLEEP DISORDER [None]
